FAERS Safety Report 10237151 (Version 1)
Quarter: 2014Q2

REPORT INFORMATION
  Report Type: Spontaneous
  Country: JP (occurrence: JP)
  Receive Date: 20140613
  Receipt Date: 20140613
  Transmission Date: 20141212
  Serious: Yes (Other)
  Sender: FDA-Public Use
  Company Number: JP-009507513-1406JPN006373

PATIENT
  Age: 55 Year
  Sex: Female

DRUGS (3)
  1. PEGINTRON [Suspect]
     Indication: CHRONIC HEPATITIS C
     Dosage: 70 MICROGRAM ONCE A WEEK
     Route: 058
     Dates: start: 20140124
  2. REBETOL [Suspect]
     Indication: CHRONIC HEPATITIS C
     Dosage: 600 MG DAILY
     Route: 048
     Dates: start: 20140124
  3. SIMEPREVIR [Suspect]
     Indication: CHRONIC HEPATITIS C
     Dosage: 100 MG ONCE DAILY
     Route: 048
     Dates: start: 20140124, end: 20140417

REACTIONS (2)
  - Aspartate aminotransferase increased [Recovered/Resolved]
  - Alanine aminotransferase increased [Recovered/Resolved]
